FAERS Safety Report 7338166-6 (Version None)
Quarter: 2011Q1

REPORT INFORMATION
  Report Type: 
  Country: None (occurrence: None)
  Receive Date: 20110308
  Receipt Date: 20110223
  Transmission Date: 20110831
  Serious: Yes (Hospitalization)
  Sender: FDA-Public Use
  Company Number: FR-ELI_LILLY_AND_COMPANY-FR201103000851

PATIENT
  Sex: Female

DRUGS (7)
  1. SKENAN [Concomitant]
     Dosage: 30 MG, 2/D
     Route: 048
     Dates: end: 20100810
  2. BROMAZEPAM [Concomitant]
     Indication: ANXIETY
     Dosage: 6 MG, DAILY (1/D)
     Route: 048
  3. ACTISKENAN [Concomitant]
     Indication: BONE PAIN
     Dosage: 10 MG, AS NEEDED
     Route: 048
     Dates: end: 20100810
  4. SKENAN [Concomitant]
     Indication: PAIN
     Dosage: 10 MG, 2/D
     Route: 048
     Dates: end: 20100810
  5. CYMBALTA [Suspect]
     Indication: DEPRESSION
     Dosage: 60 MG, DAILY (1/D)
     Route: 048
  6. LAROXYL [Concomitant]
     Indication: DEPRESSION
     Dosage: 60 D/F, DAILY (1/D)
  7. IMOVANE [Concomitant]
     Indication: INSOMNIA
     Dosage: 7.5 MG, DAILY (1/D)
     Route: 048

REACTIONS (3)
  - ABNORMAL BEHAVIOUR [None]
  - DELIRIUM [None]
  - HALLUCINATION [None]
